FAERS Safety Report 4658527-3 (Version None)
Quarter: 2005Q2

REPORT INFORMATION
  Report Type: 
  Country: None (occurrence: None)
  Receive Date: 20050509
  Receipt Date: 20050425
  Transmission Date: 20051028
  Serious: Yes (Hospitalization)
  Sender: FDA-Public Use
  Company Number: HQWYE419228APR05

PATIENT
  Sex: Male

DRUGS (1)
  1. CORDARONE [Suspect]
     Indication: CARDIAC FAILURE CONGESTIVE
     Dosage: ORAL/:A LITTLE OVER A YEAR^
     Route: 048

REACTIONS (4)
  - DEPRESSED MOOD [None]
  - DYSPNOEA EXERTIONAL [None]
  - LUNG INJURY [None]
  - SCAR [None]
